FAERS Safety Report 15333140 (Version 3)
Quarter: 2018Q4

REPORT INFORMATION
  Report Type: Report from Study
  Country: None (occurrence: US)
  Receive Date: 20180830
  Receipt Date: 20181022
  Transmission Date: 20190204
  Serious: Yes (Hospitalization, Other)
  Sender: FDA-Public Use
  Company Number: US-ABBVIE-18K-163-2426015-00

PATIENT
  Age: 67 Year
  Sex: Female
  Weight: 48.58 kg

DRUGS (25)
  1. SYSTANE VITAMIN [Concomitant]
     Indication: PRODUCT USED FOR UNKNOWN INDICATION
     Dosage: CHEWABLES
  2. VIIBRYD [Concomitant]
     Active Substance: VILAZODONE HYDROCHLORIDE
     Indication: DEPRESSION
  3. ZETIA [Concomitant]
     Active Substance: EZETIMIBE
     Indication: BLOOD CHOLESTEROL
  4. BENADRYL [Concomitant]
     Active Substance: DIPHENHYDRAMINE HYDROCHLORIDE
     Indication: HYPERSENSITIVITY
  5. NITROSTAT [Concomitant]
     Active Substance: NITROGLYCERIN
     Indication: CARDIAC DISORDER
  6. VICTOZA [Concomitant]
     Active Substance: LIRAGLUTIDE
     Indication: TYPE 2 DIABETES MELLITUS
     Dosage: 1.8
  7. PREVAGEN [Concomitant]
     Active Substance: DIETARY SUPPLEMENT
     Indication: PRODUCT USED FOR UNKNOWN INDICATION
  8. HUMIRA [Suspect]
     Active Substance: ADALIMUMAB
     Indication: ANKYLOSING SPONDYLITIS
     Route: 058
     Dates: start: 2013, end: 20180525
  9. ATORVASTATIN [Concomitant]
     Active Substance: ATORVASTATIN
     Indication: BLOOD CHOLESTEROL
  10. DOCQLACE [Concomitant]
     Active Substance: DOCUSATE SODIUM
     Indication: CONSTIPATION
  11. FLECTOR [DICLOFENAC SODIUM] [Concomitant]
     Active Substance: DICLOFENAC SODIUM
     Indication: PAIN
     Dosage: PATCH
  12. MIRALAX [Concomitant]
     Active Substance: POLYETHYLENE GLYCOL 3350
     Indication: CONSTIPATION
     Dosage: 1/2 CAPFUL DAILY
  13. NEURONTIN [Concomitant]
     Active Substance: GABAPENTIN
     Indication: NEUROPATHY PERIPHERAL
  14. TOVIAZ [Concomitant]
     Active Substance: FESOTERODINE FUMARATE
     Indication: URINARY INCONTINENCE
  15. IMITREX [Concomitant]
     Active Substance: SUMATRIPTAN SUCCINATE
     Indication: MIGRAINE
  16. ABILIFY [Concomitant]
     Active Substance: ARIPIPRAZOLE
     Indication: DEPRESSION
  17. MELATONIN [Concomitant]
     Active Substance: MELATONIN
     Indication: PRODUCT USED FOR UNKNOWN INDICATION
     Dosage: 2 GUMMIES
  18. ALEVE [Concomitant]
     Active Substance: NAPROXEN SODIUM
     Indication: PRODUCT USED FOR UNKNOWN INDICATION
  19. ASPIRIN. [Concomitant]
     Active Substance: ASPIRIN
     Indication: ANTICOAGULANT THERAPY
  20. COMBIVENT [Concomitant]
     Active Substance: ALBUTEROL SULFATE\IPRATROPIUM BROMIDE
     Indication: ASTHMA
     Dosage: INHALER
  21. TOPAMAX [Concomitant]
     Active Substance: TOPIRAMATE
     Indication: MIGRAINE PROPHYLAXIS
  22. HUMIRA [Suspect]
     Active Substance: ADALIMUMAB
     Indication: ARTHRITIS
     Route: 058
     Dates: start: 20180810
  23. MYRBETRIQ [Concomitant]
     Active Substance: MIRABEGRON
     Indication: MICTURITION URGENCY
  24. L THYROXINE [Concomitant]
     Active Substance: LEVOTHYROXINE SODIUM
     Indication: THYROID DISORDER
  25. SYSTANE (HYPROMELLOSE 2910 (4000 MPA.S)) [Concomitant]
     Active Substance: HYPROMELLOSE 2910 (4000 MPA.S)
     Indication: PRODUCT USED FOR UNKNOWN INDICATION
     Dosage: SYSTANE ICAPS AREDS 2, CHEWABLE

REACTIONS (14)
  - Influenza [Recovered/Resolved]
  - Joint stiffness [Recovering/Resolving]
  - Muscular weakness [Recovering/Resolving]
  - Procedural pain [Recovering/Resolving]
  - Fall [Recovered/Resolved]
  - Alopecia [Not Recovered/Not Resolved]
  - Femur fracture [Recovering/Resolving]
  - Pyrexia [Recovered/Resolved]
  - Hip fracture [Recovering/Resolving]
  - Fall [Recovered/Resolved]
  - Loss of consciousness [Recovered/Resolved]
  - Diarrhoea [Recovered/Resolved]
  - Diarrhoea [Recovered/Resolved]
  - Arthralgia [Recovering/Resolving]

NARRATIVE: CASE EVENT DATE: 2013
